FAERS Safety Report 8487599-3 (Version None)
Quarter: 2012Q3

REPORT INFORMATION
  Report Type: 
  Country: None (occurrence: None)
  Receive Date: 20120705
  Receipt Date: 20120627
  Transmission Date: 20120928
  Serious: Yes (Hospitalization, Other)
  Sender: FDA-Public Use
  Company Number: JP-BAYER-2012-054043

PATIENT
  Age: 15 Year
  Sex: Female
  Weight: 53 kg

DRUGS (3)
  1. IBRUPROFEN [Concomitant]
     Indication: PROPHYLAXIS
     Dosage: 200 MG, PRN
     Route: 048
     Dates: start: 20050804, end: 20111202
  2. PROCYLIN [Concomitant]
     Dosage: UNK
     Route: 048
     Dates: start: 20091001
  3. BETASERON [Suspect]
     Indication: MULTIPLE SCLEROSIS
     Dosage: UNK
     Route: 058
     Dates: end: 20111202

REACTIONS (5)
  - ARTHRALGIA [None]
  - LYMPHADENITIS [None]
  - OEDEMA PERIPHERAL [None]
  - SYSTEMIC LUPUS ERYTHEMATOSUS [None]
  - RHEUMATOID FACTOR POSITIVE [None]
